FAERS Safety Report 4340645-0 (Version None)
Quarter: 2004Q2

REPORT INFORMATION
  Report Type: 
  Country: None (occurrence: None)
  Receive Date: 20040416
  Receipt Date: 20040416
  Transmission Date: 20050107
  Serious: Yes (Other)
  Sender: FDA-Public Use
  Company Number: None

PATIENT
  Age: 54 Year
  Sex: Female
  Weight: 72.5755 kg

DRUGS (5)
  1. ZICAM [Suspect]
     Indication: NASOPHARYNGITIS
     Dosage: SPRAY ONCE EACH NOSTRIL
     Route: 045
  2. ZICAM [Suspect]
     Indication: SINUSITIS
     Dosage: SPRAY ONCE EACH NOSTRIL
     Route: 045
  3. CORDORONE [Concomitant]
  4. COUMADIN [Concomitant]
  5. PROZAC [Concomitant]

REACTIONS (2)
  - AGEUSIA [None]
  - ANOSMIA [None]
